FAERS Safety Report 5426751-8 (Version None)
Quarter: 2007Q3

REPORT INFORMATION
  Report Type: 
  Country: None (occurrence: None)
  Receive Date: 20070827
  Receipt Date: 20070815
  Transmission Date: 20080115
  Serious: Yes (Other)
  Sender: FDA-Public Use
  Company Number: EG-PFIZER INC-2007067885

PATIENT
  Age: 24 Month
  Sex: Female
  Weight: 12 kg

DRUGS (5)
  1. CEFOBID IV [Suspect]
     Indication: BRONCHITIS
     Route: 030
     Dates: start: 20070811, end: 20070811
  2. MONTELUKAST SODIUM [Concomitant]
     Dosage: DAILY DOSE:4ML
     Route: 048
  3. VENTOLIN [Concomitant]
     Route: 048
  4. EXPECTORANT SYRUP [Concomitant]
     Route: 048
  5. PARACETAMOL [Concomitant]
     Dosage: DAILY DOSE:125ML
     Route: 048

REACTIONS (3)
  - DYSPNOEA [None]
  - RASH [None]
  - URTICARIA [None]
